FAERS Safety Report 4370987-4 (Version None)
Quarter: 2004Q2

REPORT INFORMATION
  Report Type: 
  Country: None (occurrence: None)
  Receive Date: 20040601
  Receipt Date: 20040520
  Transmission Date: 20050107
  Serious: Yes (Hospitalization)
  Sender: FDA-Public Use
  Company Number: 2003UW16758

PATIENT
  Age: 46 Year
  Sex: Female
  Weight: 85.7298 kg

DRUGS (9)
  1. CRESTOR [Suspect]
     Indication: HYPERCHOLESTEROLAEMIA
     Dosage: 10 MG QD; PO
     Route: 048
     Dates: start: 20030630, end: 20031019
  2. BLACK COHOSH [Concomitant]
  3. CALCIUM W/MAGNESIUM [Concomitant]
  4. EVENING PRIMROSE OIL [Concomitant]
  5. FLAXSEED [Concomitant]
  6. ROBAXACET [Concomitant]
  7. TRAZODONE HCL [Concomitant]
  8. TYLENOL W/ CODEINE NO. 3 [Concomitant]
  9. VITAMIN B6 [Concomitant]

REACTIONS (14)
  - ASTHENIA [None]
  - BLOOD CALCIUM DECREASED [None]
  - BLOOD CREATININE DECREASED [None]
  - CARPAL TUNNEL SYNDROME [None]
  - DIZZINESS [None]
  - LIVER DISORDER [None]
  - NAUSEA [None]
  - OEDEMA PERIPHERAL [None]
  - OVERDOSE [None]
  - POLYMYOSITIS [None]
  - RENAL DISORDER [None]
  - RHABDOMYOLYSIS [None]
  - SOMNOLENCE [None]
  - WHEELCHAIR USER [None]
